FAERS Safety Report 13715988 (Version 1)
Quarter: 2017Q3

REPORT INFORMATION
  Report Type: Report from Study
  Country: US (occurrence: US)
  Receive Date: 20170705
  Receipt Date: 20170705
  Transmission Date: 20171127
  Serious: Yes (Other)
  Sender: FDA-Public Use
  Company Number: US-ROCHE-1956838

PATIENT

DRUGS (4)
  1. SAPANISERTIB [Suspect]
     Active Substance: SAPANISERTIB
     Indication: NEOPLASM MALIGNANT
     Dosage: DOSE ESCALATION PHASE: 6-40 MG VIA THREE DOSING SCHEDULES; ONCE DAILY FOR 3 DAYS [PER DAY (QD) X 3DA
     Route: 048
  2. SAPANISERTIB [Suspect]
     Active Substance: SAPANISERTIB
     Dosage: EXPANSION PHASE
     Route: 048
  3. TRASTUZUMAB. [Suspect]
     Active Substance: TRASTUZUMAB
     Indication: NEOPLASM MALIGNANT
     Route: 042
  4. PACLITAXEL. [Suspect]
     Active Substance: PACLITAXEL
     Indication: NEOPLASM MALIGNANT
     Dosage: DAYS 1, 8, AND 15
     Route: 042

REACTIONS (8)
  - Hyperglycaemia [Unknown]
  - Vomiting [Unknown]
  - Neutropenia [Unknown]
  - Diarrhoea [Unknown]
  - Hypokalaemia [Unknown]
  - Urticaria [Unknown]
  - Stomatitis [Unknown]
  - Leukopenia [Unknown]
